FAERS Safety Report 6883470-9 (Version None)
Quarter: 2010Q3

REPORT INFORMATION
  Report Type: 
  Country: None (occurrence: None)
  Receive Date: 20100729
  Receipt Date: 20100722
  Transmission Date: 20110219
  Serious: Yes (Other)
  Sender: FDA-Public Use
  Company Number: US-SANOFI-AVENTIS-2010SA034972

PATIENT
  Age: 70 Year
  Sex: Male
  Weight: 117.9 kg

DRUGS (19)
  1. LANTUS [Suspect]
     Indication: TYPE 2 DIABETES MELLITUS
     Dosage: DOSE:50 UNIT(S)
     Route: 058
     Dates: start: 20050101
  2. LANTUS [Suspect]
     Dosage: DOSE:30 UNIT(S)
     Route: 058
     Dates: start: 20090101
  3. OPTICLICK [Suspect]
     Dates: start: 20050101
  4. LOPRESSOR [Concomitant]
  5. ZESTRIL [Concomitant]
  6. WARFARIN [Concomitant]
     Dosage: 5 MG A DAY SLIDING SCALE AND 7.5 MG A DAY ON MONDAY, TUESDAY, WEDENSDAY, THURSDAY AND FRIDAY
  7. LIPITOR [Concomitant]
  8. GLUCOPHAGE [Concomitant]
     Dosage: 1500 MG AT 10 AM AND 5 PM
  9. TRICOR [Concomitant]
  10. ACTOS [Concomitant]
  11. NIASPAN [Concomitant]
  12. FLOMAX [Concomitant]
  13. AVODART [Concomitant]
  14. GLUCOSAMINE [Concomitant]
     Dosage: 1500/1500 MG TWICE DAILY
  15. DOCUSATE SODIUM [Concomitant]
  16. GENERAL NUTRIENTS [Concomitant]
     Dosage: 2 DAILY
  17. LOVAZA [Concomitant]
     Dosage: EPA 180 MG AND DHA 120 MG
  18. ALEVE [Concomitant]
  19. MIRALAX [Concomitant]
     Dosage: 1 TO 2 TIMES DAILY

REACTIONS (1)
  - CARDIAC PACEMAKER INSERTION [None]
